FAERS Safety Report 8210904-X (Version None)
Quarter: 2012Q1

REPORT INFORMATION
  Report Type: 
  Country: None (occurrence: None)
  Receive Date: 20120315
  Receipt Date: 20120307
  Transmission Date: 20120608
  Serious: Yes (Hospitalization)
  Sender: FDA-Public Use
  Company Number: US-BAYER-2012-001238

PATIENT
  Age: 29 Year
  Sex: Female
  Weight: 97.506 kg

DRUGS (3)
  1. YASMIN [Suspect]
     Indication: CONTRACEPTION
     Dosage: UNK
     Dates: start: 20040101, end: 20110201
  2. ONDANSETRON [Concomitant]
     Dosage: 4 MG, UNK
     Route: 048
     Dates: start: 20110404
  3. FAMOTIDINE [Concomitant]
     Dosage: 20 MG, UNK
     Route: 048
     Dates: start: 20110404

REACTIONS (8)
  - CHOLELITHIASIS [None]
  - ABDOMINAL PAIN [None]
  - DEPRESSION [None]
  - PAIN [None]
  - DYSPNOEA [None]
  - CHOLECYSTITIS CHRONIC [None]
  - NERVOUSNESS [None]
  - EMOTIONAL DISTRESS [None]
